FAERS Safety Report 5827881-9 (Version None)
Quarter: 2008Q3

REPORT INFORMATION
  Report Type: 
  Country: None (occurrence: None)
  Receive Date: 20080728
  Receipt Date: 20080721
  Transmission Date: 20090109
  Serious: Yes (Life-Threatening, Hospitalization)
  Sender: FDA-Public Use
  Company Number: 163-21880-08050449

PATIENT
  Age: 81 Year
  Sex: Female
  Weight: 73.4827 kg

DRUGS (4)
  1. REVLIMID [Suspect]
     Indication: MULTIPLE MYELOMA
     Dosage: 25 MG, QD X 21 DAYS, ORAL, 5 MG, DAILY FOR 21 DAYS, ORAL
     Route: 048
     Dates: start: 20071023, end: 20071101
  2. REVLIMID [Suspect]
     Indication: MULTIPLE MYELOMA
     Dosage: 25 MG, QD X 21 DAYS, ORAL, 5 MG, DAILY FOR 21 DAYS, ORAL
     Route: 048
     Dates: start: 20080509
  3. ARANESP [Concomitant]
  4. ASPIRIN [Concomitant]

REACTIONS (8)
  - CONSTIPATION [None]
  - DEHYDRATION [None]
  - DIARRHOEA [None]
  - FATIGUE [None]
  - FULL BLOOD COUNT DECREASED [None]
  - MALAISE [None]
  - NEUROPATHY PERIPHERAL [None]
  - OEDEMA PERIPHERAL [None]
